FAERS Safety Report 17099138 (Version 4)
Quarter: 2021Q3

REPORT INFORMATION
  Report Type: Report from Study
  Country: FR (occurrence: FR)
  Receive Date: 20191202
  Receipt Date: 20210921
  Transmission Date: 20211014
  Serious: Yes (Other)
  Sender: FDA-Public Use
  Company Number: FR-ASTELLAS-2019US047318

PATIENT
  Age: 37 Year
  Sex: Male

DRUGS (7)
  1. TACROLIMUS. [Suspect]
     Active Substance: TACROLIMUS
     Route: 065
     Dates: start: 20160902
  2. TACROLIMUS. [Suspect]
     Active Substance: TACROLIMUS
     Route: 065
     Dates: start: 20160708
  3. CELLCEPT [Concomitant]
     Active Substance: MYCOPHENOLATE MOFETIL\MYCOPHENOLATE MOFETIL HYDROCHLORIDE
     Indication: IMMUNOSUPPRESSION
     Dosage: 1000 UNKNOWN UNITS, ONCE DAILY
     Route: 065
     Dates: start: 20161207
  4. TACROLIMUS. [Suspect]
     Active Substance: TACROLIMUS
     Route: 065
     Dates: start: 20171212
  5. SOLUPRED [Concomitant]
     Indication: IMMUNOSUPPRESSION
     Dosage: 7.5 UNKNOWN UNITS, ONCE DAILY
     Route: 065
     Dates: start: 20160708
  6. TACROLIMUS. [Suspect]
     Active Substance: TACROLIMUS
     Route: 065
     Dates: start: 20160901
  7. TACROLIMUS. [Suspect]
     Active Substance: TACROLIMUS
     Indication: RENAL TRANSPLANT
     Route: 065
     Dates: start: 20160616

REACTIONS (2)
  - Food interaction [Unknown]
  - Anogenital warts [Recovered/Resolved]

NARRATIVE: CASE EVENT DATE: 201909
